FAERS Safety Report 8014620-9 (Version None)
Quarter: 2011Q4

REPORT INFORMATION
  Report Type: 
  Country: None (occurrence: None)
  Receive Date: 20111229
  Receipt Date: 20111222
  Transmission Date: 20120403
  Serious: No
  Sender: FDA-Public Use
  Company Number: US-B.I. PHARMACEUTICALS,INC./RIDGEFIELD-2011-BP-28681BP

PATIENT
  Sex: Female

DRUGS (11)
  1. PRADAXA [Suspect]
     Indication: ATRIAL FIBRILLATION
     Dosage: 300 MG
     Route: 048
     Dates: start: 20110402
  2. DIGOXIN [Concomitant]
     Indication: ATRIAL FIBRILLATION
     Dosage: 250 MCG
     Route: 048
     Dates: start: 20110418
  3. COZAAR [Concomitant]
     Indication: HYPERTENSION
     Dosage: 100 MG
     Route: 048
     Dates: start: 20110513
  4. ZYRTEC [Concomitant]
     Indication: SEASONAL ALLERGY
     Route: 048
     Dates: start: 20100101
  5. CALCIUM WITH VITAMIN D [Concomitant]
     Indication: ROUTINE HEALTH MAINTENANCE
     Route: 048
     Dates: start: 20060101
  6. SPIRIVA [Suspect]
     Indication: ATRIAL FIBRILLATION
     Dosage: 18 MCG
     Route: 055
     Dates: start: 20110901
  7. FISH OIL [Concomitant]
     Indication: ROUTINE HEALTH MAINTENANCE
     Route: 048
     Dates: start: 20100101
  8. VITAMIN C [Concomitant]
     Indication: ROUTINE HEALTH MAINTENANCE
     Dosage: 1000 MG
     Route: 048
     Dates: start: 19800101
  9. DILTIAZEM HCL [Concomitant]
     Indication: ATRIAL FIBRILLATION
     Dosage: 120 MG
     Route: 048
     Dates: start: 20110301
  10. ASPIRIN [Concomitant]
     Indication: ROUTINE HEALTH MAINTENANCE
     Dosage: 81 MG
     Route: 048
     Dates: start: 20010101
  11. SINGULAIR [Concomitant]
     Indication: CHRONIC OBSTRUCTIVE PULMONARY DISEASE
     Dosage: 10 MG
     Route: 048
     Dates: start: 20110901

REACTIONS (3)
  - ORAL CANDIDIASIS [None]
  - GINGIVAL BLEEDING [None]
  - HAEMOPTYSIS [None]
